FAERS Safety Report 11374164 (Version 2)
Quarter: 2015Q4

REPORT INFORMATION
  Report Type: Spontaneous
  Country: US (occurrence: None)
  Receive Date: 20150811
  Receipt Date: 20151007
  Transmission Date: 20160304
  Serious: Yes (Other)
  Sender: FDA-Public Use
  Company Number: RAP-0062-2014

PATIENT
  Age: 27 Year
  Sex: Male
  Weight: 62.5 kg

DRUGS (7)
  1. SENSIPAR 30 (CINACALCET HYDROCHLORIDE) [Concomitant]
  2. PROCYSBI DELAYED-RELEASE [Suspect]
     Active Substance: CYSTEAMINE BITARTRATE
     Indication: CYSTINOSIS
     Route: 048
     Dates: start: 20130808
  3. MIDODRINE HCL (MIDODRINE HYDROCHLORIDE) [Concomitant]
  4. LORTAB (PARACETAMOL/HYDROCODONE) [Concomitant]
  5. VALIUM [Concomitant]
     Active Substance: DIAZEPAM
  6. RENO CAPS (ASCORBIC ACID, THIAMINE, RIBOFLAVIN, NIACIN, PYRIDOXINE, FOLIC ACID, BIOTIN, PANTOTHENIC ACID, CYANOCOBALAMIN) [Concomitant]
  7. SYNTHROID [Concomitant]
     Active Substance: LEVOTHYROXINE SODIUM

REACTIONS (9)
  - Condition aggravated [None]
  - Abdominal discomfort [None]
  - Renal transplant [None]
  - Exostosis [None]
  - Flatulence [None]
  - Weight fluctuation [None]
  - Fatigue [None]
  - Back pain [None]
  - Intentional underdose [None]

NARRATIVE: CASE EVENT DATE: 2013
